FAERS Safety Report 4385999-4 (Version None)
Quarter: 2004Q2

REPORT INFORMATION
  Report Type: 
  Country: None (occurrence: None)
  Receive Date: 20040628
  Receipt Date: 20030130
  Transmission Date: 20050107
  Serious: Yes (Death, Hospitalization, Disabling, Other)
  Sender: FDA-Public Use
  Company Number: US-MERCK-0302USA00069

PATIENT
  Age: 72 Year
  Sex: Female
  Weight: 64 kg

DRUGS (19)
  1. TYLENOL [Concomitant]
     Route: 065
  2. ALBUTEROL [Concomitant]
     Route: 065
  3. AMOXICILLIN [Concomitant]
     Route: 065
  4. ASPIRIN [Concomitant]
     Route: 065
  5. LOTENSIN [Concomitant]
     Route: 065
     Dates: start: 20010313, end: 20010709
  6. CORRECTOL [Concomitant]
     Route: 065
  7. CERIVASTATIN SODIUM [Concomitant]
     Route: 065
  8. BAYCOL [Concomitant]
     Route: 065
  9. DOXEPIN HYDROCHLORIDE [Concomitant]
     Route: 065
  10. HYDROCHLOROTHIAZIDE [Concomitant]
     Route: 065
  11. MAXZIDE [Concomitant]
     Route: 065
  12. DYAZIDE [Concomitant]
     Indication: HYPERTENSION
     Route: 065
     Dates: end: 20010709
  13. DYAZIDE [Concomitant]
     Indication: OEDEMA PERIPHERAL
     Route: 065
     Dates: end: 20010709
  14. MEDROL [Concomitant]
     Route: 065
  15. SINGULAIR [Concomitant]
     Route: 065
  16. PRAVACHOL [Concomitant]
     Route: 065
     Dates: start: 19980318, end: 20010709
  17. VIOXX [Suspect]
     Indication: ARTHRALGIA
     Route: 048
     Dates: start: 19991213, end: 20010720
  18. VIOXX [Suspect]
     Route: 048
     Dates: start: 19991213, end: 20010720
  19. CALAN [Concomitant]
     Indication: BLOOD PRESSURE
     Route: 065
     Dates: start: 19991213

REACTIONS (22)
  - ADVERSE EVENT [None]
  - ANEURYSM [None]
  - ANGINA PECTORIS [None]
  - ANXIETY [None]
  - BLOOD TRIGLYCERIDES INCREASED [None]
  - CEREBRAL HAEMORRHAGE [None]
  - CHEST WALL PAIN [None]
  - DEATH [None]
  - DEEP VEIN THROMBOSIS [None]
  - DEPRESSION [None]
  - DIZZINESS [None]
  - DRUG HYPERSENSITIVITY [None]
  - DYSPEPSIA [None]
  - DYSPNOEA [None]
  - EMOTIONAL DISTRESS [None]
  - GASTROINTESTINAL DISORDER [None]
  - HIGH DENSITY LIPOPROTEIN INCREASED [None]
  - HYPERLIPIDAEMIA [None]
  - HYPERTENSION [None]
  - INJURY [None]
  - OEDEMA PERIPHERAL [None]
  - TRANSIENT ISCHAEMIC ATTACK [None]
